FAERS Safety Report 22116096 (Version 1)
Quarter: 2023Q1

REPORT INFORMATION
  Report Type: Spontaneous
  Country: US (occurrence: None)
  Receive Date: 20230320
  Receipt Date: 20230320
  Transmission Date: 20230417
  Serious: Yes (Hospitalization)
  Sender: FDA-Public Use
  Company Number: None

PATIENT
  Age: 26 Year
  Sex: Female
  Weight: 53.98 kg

DRUGS (1)
  1. PEGCETACOPLAN [Suspect]
     Active Substance: PEGCETACOPLAN
     Indication: Glomerulonephritis
     Dosage: FREQUENCY : TWICE A WEEK;?
     Route: 058
     Dates: start: 20220919, end: 20230315

REACTIONS (3)
  - Dialysis [None]
  - Renal impairment [None]
  - Azotaemia [None]

NARRATIVE: CASE EVENT DATE: 20230315
